FAERS Safety Report 7069664-0 (Version None)
Quarter: 2010Q4

REPORT INFORMATION
  Report Type: 
  Country: None (occurrence: None)
  Receive Date: 20101028
  Receipt Date: 20100401
  Transmission Date: 20110411
  Serious: No
  Sender: FDA-Public Use
  Company Number: US-WYE-H14506810

PATIENT
  Age: 52 Year
  Sex: Male
  Weight: 70.37 kg

DRUGS (1)
  1. ADVIL COLD AND SINUS [Suspect]
     Indication: NASOPHARYNGITIS
     Dosage: ONE LIQUI-GEL AS NEEDED
     Route: 048
     Dates: start: 20100301

REACTIONS (1)
  - ABDOMINAL DISCOMFORT [None]
